FAERS Safety Report 15594572 (Version 2)
Quarter: 2019Q1

REPORT INFORMATION
  Report Type: Spontaneous
  Country: JP (occurrence: JP)
  Receive Date: 20181107
  Receipt Date: 20190108
  Transmission Date: 20190417
  Serious: Yes (Other)
  Sender: FDA-Public Use
  Company Number: JP-GUERBET-JP-20180253

PATIENT
  Age: 89 Year
  Sex: Male

DRUGS (1)
  1. LIPIODOL [Suspect]
     Active Substance: ETHIODIZED OIL
     Indication: THERAPEUTIC EMBOLISATION
     Route: 013

REACTIONS (5)
  - Liver abscess [Recovered/Resolved]
  - Enterobacter infection [Recovered/Resolved]
  - Enterococcal infection [Recovered/Resolved]
  - Sepsis [Recovered/Resolved]
  - Product use in unapproved indication [Recovered/Resolved]
